FAERS Safety Report 20356748 (Version 1)
Quarter: 2022Q1

REPORT INFORMATION
  Report Type: Spontaneous
  Country: US (occurrence: None)
  Receive Date: 20220119
  Receipt Date: 20220119
  Transmission Date: 20220423
  Serious: No
  Sender: FDA-Public Use
  Company Number: None

PATIENT
  Sex: Female
  Weight: 55.4 kg

DRUGS (1)
  1. RASBURICASE [Suspect]
     Active Substance: RASBURICASE
     Indication: Tumour lysis syndrome
     Dosage: FREQUENCY : ONCE;?
     Route: 042

REACTIONS (4)
  - Methaemoglobinaemia [None]
  - Haemolytic anaemia [None]
  - Drug monitoring procedure not performed [None]
  - Aspiration pleural cavity [None]
